FAERS Safety Report 18649061 (Version 1)
Quarter: 2020Q4

REPORT INFORMATION
  Report Type: Report from Study
  Country: US (occurrence: US)
  Receive Date: 20201222
  Receipt Date: 20201222
  Transmission Date: 20210114
  Serious: Yes (Disabling, Other)
  Sender: FDA-Public Use
  Company Number: US-ADVANZ PHARMA-202012010993

PATIENT

DRUGS (3)
  1. HYDROXYCHLOROQUINE [Suspect]
     Active Substance: HYDROXYCHLOROQUINE
     Dosage: UNK, QD, HALF TO ONE PILL A DAY
     Route: 065
  2. HYDROXYCHLOROQUINE [Suspect]
     Active Substance: HYDROXYCHLOROQUINE
     Indication: PRODUCT USED FOR UNKNOWN INDICATION
     Dosage: UNKNOWN
     Route: 065
  3. KEVZARA [Suspect]
     Active Substance: SARILUMAB
     Indication: RHEUMATOID ARTHRITIS
     Dosage: 200 MG, QOW (EVERY OTHER WEEK)
     Route: 058
     Dates: start: 20190719, end: 202010

REACTIONS (11)
  - Cardiac valve disease [Not Recovered/Not Resolved]
  - Pain [Not Recovered/Not Resolved]
  - Blood potassium increased [Not Recovered/Not Resolved]
  - Nausea [Not Recovered/Not Resolved]
  - Nasopharyngitis [Not Recovered/Not Resolved]
  - Vomiting [Unknown]
  - Loss of personal independence in daily activities [Not Recovered/Not Resolved]
  - Back disorder [Not Recovered/Not Resolved]
  - Disability [Not Recovered/Not Resolved]
  - Dyspnoea [Not Recovered/Not Resolved]
  - Dysgraphia [Not Recovered/Not Resolved]

NARRATIVE: CASE EVENT DATE: 20191225
